FAERS Safety Report 16661948 (Version 1)
Quarter: 2019Q3

REPORT INFORMATION
  Report Type: Spontaneous
  Country: FR (occurrence: FR)
  Receive Date: 20190802
  Receipt Date: 20190802
  Transmission Date: 20191004
  Serious: Yes (Hospitalization)
  Sender: FDA-Public Use
  Company Number: FR-ASCEND THERAPEUTICS US, LLC-2072691

PATIENT
  Age: 56 Year
  Sex: Female

DRUGS (2)
  1. ESTROGEL [Suspect]
     Active Substance: ESTRADIOL
     Indication: HORMONE REPLACEMENT THERAPY
     Route: 003
     Dates: start: 2014, end: 201811
  2. PROGESTERONE. [Suspect]
     Active Substance: PROGESTERONE
     Route: 003
     Dates: start: 2014, end: 201811

REACTIONS (1)
  - Meningioma [Not Recovered/Not Resolved]
